FAERS Safety Report 24540624 (Version 1)
Quarter: 2024Q4

REPORT INFORMATION
  Report Type: Spontaneous
  Country: PT (occurrence: PT)
  Receive Date: 20241023
  Receipt Date: 20241023
  Transmission Date: 20250115
  Serious: Yes (Hospitalization)
  Sender: BIOVITRUM
  Company Number: None

PATIENT
  Age: 57 Year
  Sex: Male

DRUGS (14)
  1. DOPTELET [Suspect]
     Active Substance: AVATROMBOPAG MALEATE
     Indication: Immune thrombocytopenia
     Dosage: 2 TABLETS AT MONDAY, WEDNESDAY AND FRIDAY-1 TABLET PER DAY IN OTHER WEEK DAYS
     Dates: start: 20240814, end: 20240924
  2. DOPTELET [Suspect]
     Active Substance: AVATROMBOPAG MALEATE
     Dosage: 20 MG PER DAY FROM 25-SEP-2024
     Dates: start: 20240925
  3. Aspirin GR 100 mg gastro-resistant tablets [Concomitant]
     Indication: Product used for unknown indication
     Dosage: 1 TABLET PER DAY AT DINNER
  4. CLOPIDOGREL [Concomitant]
     Active Substance: CLOPIDOGREL BISULFATE
     Indication: Product used for unknown indication
     Dosage: ONE PER DAY AT DINNER
  5. EZETIMIBE\ROSUVASTATIN [Concomitant]
     Active Substance: EZETIMIBE\ROSUVASTATIN
     Indication: Product used for unknown indication
     Dosage: ONE PER DAY AT DINNER
  6. BISOPROLOL FUMARATE\PERINDOPRIL ARGININE [Concomitant]
     Active Substance: BISOPROLOL FUMARATE\PERINDOPRIL ARGININE
     Indication: Product used for unknown indication
     Dosage: 1/2 TABLET PER DAY AT BREAKFAST
  7. BUPRENORPHINE [Concomitant]
     Active Substance: BUPRENORPHINE
     Indication: Product used for unknown indication
     Dosage: 2 MG ID
  8. PANTOPRAZOLE SODIUM [Concomitant]
     Active Substance: PANTOPRAZOLE SODIUM
     Indication: Product used for unknown indication
     Dosage: ONE PER DAY ON AN EMPTY STOMACH
  9. TRAZODONE [Concomitant]
     Active Substance: TRAZODONE HYDROCHLORIDE
     Indication: Product used for unknown indication
     Dosage: ONE PER DAY AT BEDTIME
  10. BROMAZEPAM [Concomitant]
     Active Substance: BROMAZEPAM
     Indication: Product used for unknown indication
     Dosage: AT BEDTIME
  11. ?cido f?lico [Concomitant]
     Indication: Product used for unknown indication
     Dosage: ONE AT LUNCH
  12. Epsicaprom 25 [Concomitant]
     Indication: Haemorrhage
     Dosage: AS NECESSARY({ASNECESSARY})?IN AN EMERGENCY UNTIL 8/8H IF HEMORRHAGE?SOLUTION FOR PERFUSION
  13. FERROUS SULFATE [Concomitant]
     Active Substance: FERROUS SULFATE
     Indication: Product used for unknown indication
     Dosage: TABLET ON AN EMPTY STOMACH FOR 3 MONTHS
  14. CLONIX [Concomitant]
     Indication: Pain
     Dosage: AS NECESSARY({ASNECESSARY})?300 MG AN EMERGENCY IF PAIN

REACTIONS (2)
  - Acute myocardial infarction [Recovered/Resolved]
  - Acute myocardial infarction [Recovered/Resolved]

NARRATIVE: CASE EVENT DATE: 20240822
